FAERS Safety Report 4374377-X (Version None)
Quarter: 2004Q2

REPORT INFORMATION
  Report Type: 
  Country: None (occurrence: None)
  Receive Date: 20040604
  Receipt Date: 20040524
  Transmission Date: 20050107
  Serious: Yes (Death)
  Sender: FDA-Public Use
  Company Number: USA-2003-0011233

PATIENT
  Sex: Male
  Weight: 99.8 kg

DRUGS (4)
  1. OXYCONTIN TABLETS (OXYCODONE  HYDROCHLORIDE) CR TALBET [Suspect]
     Indication: PAIN
  2. BENZODIAZEPINES() [Suspect]
  3. CAFFEINE (CAFFEINE) [Suspect]
  4. NICOTINE [Suspect]

REACTIONS (3)
  - COMPLETED SUICIDE [None]
  - GUN SHOT WOUND [None]
  - OVERDOSE [None]
